FAERS Safety Report 6417009-9 (Version None)
Quarter: 2009Q4

REPORT INFORMATION
  Report Type: 
  Country: None (occurrence: None)
  Receive Date: 20091023
  Receipt Date: 20091008
  Transmission Date: 20100525
  Serious: Yes (Life-Threatening, Hospitalization, Other)
  Sender: FDA-Public Use
  Company Number: DSM-2009-01568

PATIENT
  Age: 49 Year
  Sex: Male
  Weight: 95.5 kg

DRUGS (3)
  1. COOLMETEC (HYDROCHLOROTHIAZIDE, OLMESARTAN MEDOXOMIL)(TABLET)(HYDROCHL [Suspect]
     Indication: HYPERTENSION
     Dosage: 20/25MG (1 IN 1 D),ORAL
     Route: 048
     Dates: start: 20050125, end: 20071218
  2. CRESTOR (ROSUVASTATIN)(5 MILLIGRAM) (ROSUVASTATIN) [Concomitant]
  3. INIPOMP (PANTOPRAZOLE)(40 MILLIGRAM) (PANTOPRAZOLE) [Concomitant]

REACTIONS (2)
  - ATRIAL FIBRILLATION [None]
  - VENTRICULAR TACHYCARDIA [None]
